FAERS Safety Report 10076988 (Version 2)
Quarter: 2014Q2

REPORT INFORMATION
  Report Type: Spontaneous
  Country: NL (occurrence: NL)
  Receive Date: 20140414
  Receipt Date: 20140414
  Transmission Date: 20141212
  Serious: Yes (Death)
  Sender: FDA-Public Use
  Company Number: ALCN2008NL001891

PATIENT
  Age: 56 Year
  Sex: Female

DRUGS (5)
  1. FLUORESCEIN SODIUM [Suspect]
     Indication: ANGIOGRAM RETINA
     Route: 040
  2. BETAHISTIDINE [Concomitant]
  3. FUROSEMIDE [Concomitant]
  4. FELODIPIN [Concomitant]
  5. METOPROLOL [Concomitant]

REACTIONS (4)
  - Anaphylactic shock [Fatal]
  - Laryngospasm [Fatal]
  - Vomiting [Fatal]
  - Dissociation [Fatal]
